FAERS Safety Report 14242020 (Version 1)
Quarter: 2017Q4

REPORT INFORMATION
  Report Type: Spontaneous
  Country: US (occurrence: US)
  Receive Date: 20171130
  Receipt Date: 20171130
  Transmission Date: 20180321
  Serious: Yes (Life-Threatening, Hospitalization, Disabling, Other)
  Sender: FDA-Public Use
  Company Number: None

PATIENT
  Age: 34 Year
  Sex: Male
  Weight: 53.55 kg

DRUGS (3)
  1. RENVELA [Concomitant]
     Active Substance: SEVELAMER CARBONATE
  2. BISOPROLOL [Concomitant]
     Active Substance: BISOPROLOL
  3. ATENOLOL. [Suspect]
     Active Substance: ATENOLOL
     Indication: HYPERTENSION
     Dosage: ?          QUANTITY:1 TABLET(S);?
     Route: 048
     Dates: start: 19960601, end: 20140101

REACTIONS (1)
  - Autoimmune disorder [None]

NARRATIVE: CASE EVENT DATE: 19990101
